FAERS Safety Report 5480768-6 (Version None)
Quarter: 2007Q4

REPORT INFORMATION
  Report Type: 
  Country: None (occurrence: None)
  Receive Date: 20071009
  Receipt Date: 20070926
  Transmission Date: 20080405
  Serious: Yes (Death, Hospitalization, Other)
  Sender: FDA-Public Use
  Company Number: JP-SHR-JP-2005-002374

PATIENT
  Age: 81 Year
  Sex: Male

DRUGS (2)
  1. SOTALOL HYDROCHLORIDE [Suspect]
     Dosage: 40 MG, 1X/DAY
     Route: 048
     Dates: start: 20030326, end: 20030403
  2. CONIEL [Concomitant]
     Route: 048
     Dates: end: 20030403

REACTIONS (4)
  - BLOOD CREATININE INCREASED [None]
  - BLOOD UREA INCREASED [None]
  - CARDIAC FAILURE [None]
  - RENAL IMPAIRMENT [None]
